FAERS Safety Report 4487240-0 (Version None)
Quarter: 2004Q4

REPORT INFORMATION
  Report Type: 
  Country: None (occurrence: None)
  Receive Date: 20041022
  Receipt Date: 20041008
  Transmission Date: 20050328
  Serious: Yes (Hospitalization)
  Sender: FDA-Public Use
  Company Number: 239769

PATIENT
  Age: 6 Year
  Sex: Male
  Weight: 21 kg

DRUGS (5)
  1. NORDITROPIN [Suspect]
     Indication: ILL-DEFINED DISORDER
     Dosage: 0.83 MG, QD, SUBCUTANEOUS
     Route: 058
     Dates: start: 19990928
  2. PREDNISOLONE [Concomitant]
  3. AZATHIOPRINE [Concomitant]
  4. CYCLOSPORINE [Concomitant]
  5. ENALAPRIL [Concomitant]

REACTIONS (1)
  - KNEE DEFORMITY [None]
